FAERS Safety Report 6056989-0 (Version None)
Quarter: 2009Q1

REPORT INFORMATION
  Report Type: 
  Country: None (occurrence: None)
  Receive Date: 20090126
  Receipt Date: 20090126
  Transmission Date: 20090719
  Serious: No
  Sender: FDA-Public Use
  Company Number: None

PATIENT
  Age: 28 Year
  Sex: Male
  Weight: 90.7194 kg

DRUGS (2)
  1. GABAPENTIN [Suspect]
     Indication: PAIN
     Dosage: 800 MG 3X DAILY PO
     Route: 048
     Dates: start: 20020801, end: 20050801
  2. GABAPENTIN [Suspect]
     Indication: POST HERPETIC NEURALGIA
     Dosage: 800 MG 3X DAILY PO
     Route: 048
     Dates: start: 20020801, end: 20050801

REACTIONS (8)
  - ANGER [None]
  - CONFUSIONAL STATE [None]
  - COORDINATION ABNORMAL [None]
  - DRUG EFFECT DECREASED [None]
  - HYPOTONIA [None]
  - LOSS OF CONTROL OF LEGS [None]
  - MOOD SWINGS [None]
  - WEIGHT INCREASED [None]
